FAERS Safety Report 8825068 (Version 3)
Quarter: 2013Q3

REPORT INFORMATION
  Report Type: Report from Study
  Country: US (occurrence: US)
  Receive Date: 20121004
  Receipt Date: 20130812
  Transmission Date: 20140515
  Serious: No
  Sender: FDA-Public Use
  Company Number: PHEH2012US015195

PATIENT
  Age: 29 Year
  Sex: Female
  Weight: 128.35 kg

DRUGS (9)
  1. GILENYA [Suspect]
     Indication: MULTIPLE SCLEROSIS
     Dosage: 0.5 MG, QD
     Route: 048
     Dates: start: 20120727, end: 201212
  2. CYMBALTA [Concomitant]
     Dosage: 60 MG, QD
  3. QUIT [Concomitant]
     Dosage: UNK UKN, IRD
     Route: 062
  4. AZTREONAM [Concomitant]
     Dosage: 1 G, BID
     Route: 042
  5. TRAZODONE [Concomitant]
     Dosage: 75 MG, UNK, EVERY BEDTIME
  6. HYDROXYZINE [Concomitant]
     Dosage: 50 MG, QID
  7. CARISOPRODOL [Concomitant]
     Dosage: 350 MG, BID
  8. PROVERA [Concomitant]
     Dosage: UNK UKN, ONCE EVERY 3 MONTHS
  9. CHANTIX [Concomitant]
     Dosage: UNK UKN, QD

REACTIONS (6)
  - Abdominal discomfort [Recovered/Resolved]
  - Vomiting [Not Recovered/Not Resolved]
  - Fatigue [Not Recovered/Not Resolved]
  - Somnolence [Not Recovered/Not Resolved]
  - Nausea [Not Recovered/Not Resolved]
  - Headache [Not Recovered/Not Resolved]
